FAERS Safety Report 12212315 (Version 1)
Quarter: 2016Q1

REPORT INFORMATION
  Report Type: Other
  Country: US (occurrence: US)
  Receive Date: 20160325
  Receipt Date: 20160325
  Transmission Date: 20160526
  Serious: No
  Sender: FDA-Public Use
  Company Number: US-DEP_02563_2015

PATIENT
  Age: 78 Year
  Sex: Male
  Weight: 103 kg

DRUGS (5)
  1. CLONAZEPAM. [Suspect]
     Active Substance: CLONAZEPAM
     Indication: PRODUCT USED FOR UNKNOWN INDICATION
     Dosage: TAKES HALF NIGHTLY
     Dates: start: 2014
  2. UNSPECIFIED DIABETES MEDICATION [Concomitant]
     Indication: DIABETES MELLITUS
     Dosage: ABOUT 2 SHOTS A DAY
  3. GRALISE [Suspect]
     Active Substance: GABAPENTIN
     Indication: HYPOAESTHESIA
     Dosage: SAMPLE PACK, TITRATED UP TO 900 MG, ONCE DAILY
     Route: 048
     Dates: start: 20150222
  4. GRALISE [Suspect]
     Active Substance: GABAPENTIN
     Indication: POOR PERIPHERAL CIRCULATION
     Dosage: SAMPLE PACK, TITRATED UP TO 900 MG, ONCE DAILY
     Route: 048
     Dates: start: 20150222
  5. GRALISE [Suspect]
     Active Substance: GABAPENTIN
     Indication: OFF LABEL USE
     Dosage: SAMPLE PACK, TITRATED UP TO 900 MG, ONCE DAILY
     Route: 048
     Dates: start: 20150222

REACTIONS (4)
  - Somnolence [Not Recovered/Not Resolved]
  - Feeling of relaxation [Not Recovered/Not Resolved]
  - Dizziness [Recovering/Resolving]
  - Drug interaction [Unknown]

NARRATIVE: CASE EVENT DATE: 201502
